FAERS Safety Report 19377339 (Version 3)
Quarter: 2021Q2

REPORT INFORMATION
  Report Type: Spontaneous
  Country: CN (occurrence: CN)
  Receive Date: 20210604
  Receipt Date: 20210623
  Transmission Date: 20210717
  Serious: Yes (Other)
  Sender: FDA-Public Use
  Company Number: CN-ASTRAZENECA-2021A486748

PATIENT
  Age: 57 Year
  Sex: Male

DRUGS (1)
  1. IMFINZI [Suspect]
     Active Substance: DURVALUMAB
     Indication: SMALL CELL LUNG CANCER
     Dosage: 2.0DF UNKNOWN
     Route: 042
     Dates: start: 20210526, end: 20210526

REACTIONS (8)
  - Chest discomfort [Recovered/Resolved]
  - Seizure [Recovered/Resolved]
  - Body temperature increased [Recovered/Resolved]
  - Feeling cold [Unknown]
  - Rash [Recovering/Resolving]
  - Infusion related reaction [Unknown]
  - Platelet count decreased [Not Recovered/Not Resolved]
  - Haematotoxicity [Unknown]

NARRATIVE: CASE EVENT DATE: 20210526
